FAERS Safety Report 23107637 (Version 2)
Quarter: 2023Q4

REPORT INFORMATION
  Report Type: Spontaneous
  Country: PT (occurrence: PT)
  Receive Date: 20231026
  Receipt Date: 20231030
  Transmission Date: 20240110
  Serious: Yes (Other)
  Sender: FDA-Public Use
  Company Number: PT-CELLTRION HEALTHCARE HUNGARY KFT-2023PT020132

PATIENT
  Age: 38 Year
  Sex: Female

DRUGS (4)
  1. REMICADE [Suspect]
     Active Substance: INFLIXIMAB
     Indication: Colitis ulcerative
     Route: 041
  2. VEDOLIZUMAB [Concomitant]
     Active Substance: VEDOLIZUMAB
     Dosage: 24 MONTHS (8-44)
  3. TOFACITINIB [Concomitant]
     Active Substance: TOFACITINIB
     Dosage: 24 MONTHS (8-44).
  4. TACROLIMUS [Concomitant]
     Active Substance: TACROLIMUS
     Dosage: 24 MONTHS (8-44)

REACTIONS (2)
  - Haematochezia [Unknown]
  - Weight decreased [Unknown]
